FAERS Safety Report 16343377 (Version 1)
Quarter: 2019Q2

REPORT INFORMATION
  Report Type: Spontaneous
  Country: US (occurrence: US)
  Receive Date: 20190522
  Receipt Date: 20190522
  Transmission Date: 20190711
  Serious: No
  Sender: FDA-Public Use
  Company Number: US-BAUSCH-BL-2019-013721

PATIENT
  Sex: Female
  Weight: 37.23 kg

DRUGS (2)
  1. TRETINOIN. [Suspect]
     Active Substance: TRETINOIN
     Indication: PRODUCT USED FOR UNKNOWN INDICATION
     Dosage: GEL MICROSPHERE
     Route: 061
     Dates: end: 201812
  2. BENZOYL PEROXIDE. [Concomitant]
     Active Substance: BENZOYL PEROXIDE
     Indication: PRODUCT USED FOR UNKNOWN INDICATION

REACTIONS (4)
  - Sensitive skin [Unknown]
  - Erythema [Recovering/Resolving]
  - Scratch [Unknown]
  - Skin exfoliation [Recovered/Resolved]
